FAERS Safety Report 9785257 (Version 1)
Quarter: 2013Q4

REPORT INFORMATION
  Report Type: Spontaneous
  Country: US (occurrence: None)
  Receive Date: 20131226
  Receipt Date: 20131226
  Transmission Date: 20140711
  Serious: Yes (Death)
  Sender: FDA-Public Use
  Company Number: None

PATIENT
  Age: 62 Year
  Sex: Male
  Weight: 105 kg

DRUGS (23)
  1. OBINUTUZUMAB 1000 MG GENENTECH [Suspect]
     Indication: CHRONIC LYMPHOCYTIC LEUKAEMIA
     Dosage: 1000 MG ?100 MG D1-900MG D2?INTRAVENOUS
     Route: 042
     Dates: start: 20131218
  2. CHLORAMBUCIL [Concomitant]
  3. DEXAMETHASONE [Concomitant]
  4. ACETAMINOPHEN [Concomitant]
  5. DIPHENHYDRAMINE [Concomitant]
  6. CIPROFLOXACIN [Concomitant]
  7. ALLOPURINOL [Suspect]
  8. TRAMADOL [Concomitant]
  9. AMBIEN [Concomitant]
  10. DIGOXIN [Concomitant]
  11. ZOSYN [Concomitant]
  12. MORPHINE [Concomitant]
  13. EPINNEPHRINE [Concomitant]
  14. SODIUM BICARD [Concomitant]
  15. CALCIUM GLUCONATE [Concomitant]
  16. DILITIAZEM [Concomitant]
  17. GEMTAMICIN [Concomitant]
  18. AMIODARONE [Concomitant]
  19. FENTANYL [Concomitant]
  20. MIDAZOLAM [Concomitant]
  21. PHENYLEPHRINE [Concomitant]
  22. VASOPRESSIN [Concomitant]
  23. EPINEPHRINE [Concomitant]

REACTIONS (2)
  - Pyrexia [None]
  - Tachycardia [None]
